FAERS Safety Report 5899031-4 (Version None)
Quarter: 2008Q3

REPORT INFORMATION
  Report Type: 
  Country: None (occurrence: None)
  Receive Date: 20080925
  Receipt Date: 20080915
  Transmission Date: 20090109
  Serious: Yes (Hospitalization)
  Sender: FDA-Public Use
  Company Number: DE-PFIZER INC-2008078338

PATIENT
  Sex: Female

DRUGS (6)
  1. EPIRUBICIN HYDROCHLORIDE [Suspect]
     Indication: BREAST CANCER
     Dosage: DAILY DOSE:164MG
     Route: 042
     Dates: start: 20070124
  2. CYCLOPHOSPHAMIDE [Suspect]
     Indication: BREAST CANCER
     Dosage: DAILY DOSE:820MG
     Route: 042
     Dates: start: 20070124
  3. FLUOROURACIL [Suspect]
     Indication: BREAST CANCER
     Dosage: DAILY DOSE:820MG
     Route: 042
     Dates: start: 20070124
  4. UROMITEXAN [Suspect]
     Route: 042
     Dates: start: 20070124
  5. FORTECORTIN [Concomitant]
     Route: 048
     Dates: start: 20070124
  6. NAVOBAN [Concomitant]
     Route: 042
     Dates: start: 20070124

REACTIONS (1)
  - INFLUENZA LIKE ILLNESS [None]
